FAERS Safety Report 13178632 (Version 1)
Quarter: 2017Q1

REPORT INFORMATION
  Report Type: Spontaneous
  Country: None (occurrence: US)
  Receive Date: 20170201
  Receipt Date: 20170201
  Transmission Date: 20170428
  Serious: No
  Sender: FDA-Public Use
  Company Number: None

PATIENT
  Age: 49 Year
  Sex: Male

DRUGS (1)
  1. ATROPINE, 0.2MG [Suspect]
     Active Substance: ATROPINE
     Indication: PANCREATIC CARCINOMA

REACTIONS (2)
  - Dysarthria [None]
  - Tongue oedema [None]
